FAERS Safety Report 6484306-0 (Version None)
Quarter: 2009Q4

REPORT INFORMATION
  Report Type: 
  Country: None (occurrence: None)
  Receive Date: 20091209
  Receipt Date: 20091126
  Transmission Date: 20100525
  Serious: Yes (Hospitalization)
  Sender: FDA-Public Use
  Company Number: JP-PFIZER INC-2009287135

PATIENT
  Age: 61 Year
  Sex: Male
  Weight: 47 kg

DRUGS (12)
  1. CAMPTOSAR [Suspect]
     Indication: GASTRIC CANCER
     Dosage: 61.2 MG/M2 (90 MG)
     Route: 041
     Dates: start: 20090828, end: 20090911
  2. OXYCONTIN [Suspect]
     Indication: CANCER PAIN
     Dosage: 30 MG, 2X/DAY
     Route: 048
     Dates: start: 20090731
  3. RANDA [Concomitant]
     Indication: GASTRIC CANCER
     Dosage: 17 MG/M2 (25 MG)
     Route: 041
     Dates: start: 20090828, end: 20090911
  4. GRANISETRON HYDROCHLORIDE [Concomitant]
     Indication: PREMEDICATION
     Dosage: 3 MG
     Route: 041
     Dates: start: 20090828, end: 20090911
  5. DECADRON #1 [Concomitant]
     Indication: PREMEDICATION
     Dosage: 8 MG
     Route: 041
     Dates: start: 20090828, end: 20090911
  6. LENDORMIN [Concomitant]
     Indication: INSOMNIA
     Dosage: 0.25 MG
     Route: 048
     Dates: start: 20060721
  7. PROMAC /JPN/ [Concomitant]
     Indication: DYSGEUSIA
     Dosage: 75 MG, 2X/DAY
     Dates: start: 20070406
  8. ROHIPNOL [Concomitant]
     Indication: INSOMNIA
     Dosage: 1 MG
     Route: 048
     Dates: start: 20080104
  9. DEPAS [Concomitant]
     Indication: ANXIETY DISORDER
     Dosage: 0.5 MG
     Route: 048
     Dates: start: 20080104
  10. MAG-LAX [Concomitant]
     Indication: CONSTIPATION
     Dosage: 330 MG, 3X/DAY
     Route: 048
     Dates: start: 20090731
  11. NOVAMIN [Concomitant]
     Indication: NAUSEA
     Dosage: 5 MG, 3X/DAY
     Route: 048
     Dates: start: 20090731
  12. MOBIC [Concomitant]
     Indication: BACK PAIN
     Dosage: 10 MG
     Route: 048
     Dates: start: 20090731

REACTIONS (7)
  - ENTEROCOLITIS [None]
  - HYPONATRAEMIA [None]
  - LEUKOPENIA [None]
  - LOSS OF CONSCIOUSNESS [None]
  - NEUTROPENIA [None]
  - PNEUMONIA [None]
  - THROMBOCYTOPENIA [None]
